FAERS Safety Report 15621597 (Version 1)
Quarter: 2018Q4

REPORT INFORMATION
  Report Type: Spontaneous
  Country: US (occurrence: US)
  Receive Date: 20181109
  Receipt Date: 20181109
  Transmission Date: 20190205
  Serious: Yes (Other)
  Sender: FDA-Public Use
  Company Number: None

PATIENT
  Age: 83 Year
  Sex: Female

DRUGS (16)
  1. VITAMIN E [Concomitant]
     Active Substance: .ALPHA.-TOCOPHEROL
  2. NAMENDA 10MG TABLETS [Concomitant]
  3. GABAPENTIN 100MG CAPSULES [Concomitant]
     Active Substance: GABAPENTIN
  4. RAZADYNE ER 24MG CAPSULES [Concomitant]
  5. DYAZIDE 37.5MG/25MG CAPSULES [Concomitant]
  6. BIOTIN 2500 MCG CAPSULES [Concomitant]
  7. CALCIUM WITH VITAMIN D [Concomitant]
     Active Substance: CALCIUM\VITAMIN D
  8. COMPAZINE 10MG TABLETS [Concomitant]
  9. VITAMIN C [Concomitant]
     Active Substance: ASCORBIC ACID
  10. CAPECITABINE 500 MG TABLETS [Suspect]
     Active Substance: CAPECITABINE
     Indication: BREAST CANCER
     Route: 048
     Dates: start: 20181024, end: 20181105
  11. VITAMIN B12 [Concomitant]
     Active Substance: CYANOCOBALAMIN
  12. FOLIC ACID 1MG TABLETS [Concomitant]
  13. CELEXA 20 MG TABLETS [Concomitant]
  14. ENALAPRIL 2.3MG TABLETS [Concomitant]
  15. EMLA [Concomitant]
     Active Substance: LIDOCAINE\PRILOCAINE
  16. VITAMIN D2 [Concomitant]
     Active Substance: ERGOCALCIFEROL

REACTIONS (6)
  - Vomiting [None]
  - Blister [None]
  - Nausea [None]
  - Stomatitis [None]
  - Abdominal pain [None]
  - Abdominal discomfort [None]

NARRATIVE: CASE EVENT DATE: 20181105
